FAERS Safety Report 6823727-0 (Version None)
Quarter: 2010Q3

REPORT INFORMATION
  Report Type: 
  Country: None (occurrence: None)
  Receive Date: 20100708
  Receipt Date: 20060821
  Transmission Date: 20110219
  Serious: No
  Sender: FDA-Public Use
  Company Number: US-PFIZER INC-2006102904

PATIENT
  Sex: Female
  Weight: 49.9 kg

DRUGS (7)
  1. CHANTIX [Suspect]
     Indication: EX-TOBACCO USER
     Dates: start: 20060809, end: 20060820
  2. ZOLOFT [Concomitant]
  3. ENALAPRIL MALEATE [Concomitant]
  4. VYTORIN [Concomitant]
  5. POTASSIUM CHLORIDE [Concomitant]
  6. ACETYLSALICYLIC ACID [Concomitant]
  7. VITAMINS [Concomitant]

REACTIONS (4)
  - INSOMNIA [None]
  - MALAISE [None]
  - NAUSEA [None]
  - VOMITING [None]
